FAERS Safety Report 6377456-0 (Version None)
Quarter: 2009Q3

REPORT INFORMATION
  Report Type: 
  Country: None (occurrence: None)
  Receive Date: 20090925
  Receipt Date: 20090915
  Transmission Date: 20100115
  Serious: Yes (Hospitalization, Other)
  Sender: FDA-Public Use
  Company Number: DE-ELI_LILLY_AND_COMPANY-DE200907003595

PATIENT
  Sex: Male

DRUGS (1)
  1. FORTEO [Suspect]
     Indication: OSTEOPOROSIS
     Dosage: 20 UG, UNKNOWN
     Route: 058
     Dates: start: 20090630, end: 20090713

REACTIONS (5)
  - APATHY [None]
  - BRONCHIAL DISORDER [None]
  - HYPOTONIA [None]
  - PLASMACYTOMA [None]
  - PYREXIA [None]
